FAERS Safety Report 20318829 (Version 1)
Quarter: 2022Q1

REPORT INFORMATION
  Report Type: Spontaneous
  Country: US (occurrence: None)
  Receive Date: 20220109
  Receipt Date: 20220109
  Transmission Date: 20220423
  Serious: Yes (unspecified)
  Sender: FDA-Public Use
  Company Number: None

PATIENT
  Age: 70 Year
  Sex: Female
  Weight: 99 kg

DRUGS (1)
  1. PREDNISONE [Suspect]
     Active Substance: PREDNISONE
     Indication: COVID-19
     Dosage: FREQUENCY : 4 TIMES A DAY;?
     Route: 048
     Dates: start: 20211127, end: 20220106

REACTIONS (9)
  - Pruritus [None]
  - Nausea [None]
  - Diarrhoea [None]
  - Mood swings [None]
  - Derealisation [None]
  - Aggression [None]
  - Hallucination, visual [None]
  - Fall [None]
  - Abnormal behaviour [None]

NARRATIVE: CASE EVENT DATE: 20220106
